FAERS Safety Report 7061071-X (Version None)
Quarter: 2010Q4

REPORT INFORMATION
  Report Type: 
  Country: None (occurrence: None)
  Receive Date: 20101026
  Receipt Date: 20101013
  Transmission Date: 20110411
  Serious: Yes (Other)
  Sender: FDA-Public Use
  Company Number: US-PFIZER INC-2010130706

PATIENT
  Sex: Female

DRUGS (5)
  1. GEODON [Suspect]
     Indication: MOOD SWINGS
     Dosage: 160 MG/DAY
  2. GEODON [Suspect]
     Indication: SLEEP DISORDER
  3. GEODON [Suspect]
     Indication: AGITATION
  4. TRAZODONE [Suspect]
  5. AMBIEN [Suspect]

REACTIONS (4)
  - DRUG INEFFECTIVE [None]
  - GAIT DISTURBANCE [None]
  - POLYMEDICATION [None]
  - SEDATION [None]
